FAERS Safety Report 6196070-3 (Version None)
Quarter: 2009Q2

REPORT INFORMATION
  Report Type: 
  Country: None (occurrence: None)
  Receive Date: 20090520
  Receipt Date: 20050406
  Transmission Date: 20091009
  Serious: Yes (Hospitalization)
  Sender: FDA-Public Use
  Company Number: NL-ROCHE-601938

PATIENT
  Sex: Female

DRUGS (5)
  1. CAPECITABINE [Suspect]
     Indication: COLORECTAL CANCER
     Route: 048
  2. IRINOTECAN HCL [Suspect]
     Indication: COLORECTAL CANCER
     Route: 042
     Dates: start: 20040112, end: 20040112
  3. ANTIEMETIC [Concomitant]
  4. SEVREDOL [Concomitant]
  5. METFORMIN HCL [Concomitant]

REACTIONS (3)
  - FEBRILE NEUTROPENIA [None]
  - HYDRONEPHROSIS [None]
  - UROSEPSIS [None]
